FAERS Safety Report 7720912-0 (Version None)
Quarter: 2011Q3

REPORT INFORMATION
  Report Type: 
  Country: None (occurrence: None)
  Receive Date: 20110831
  Receipt Date: 20110823
  Transmission Date: 20111222
  Serious: Yes (Hospitalization)
  Sender: FDA-Public Use
  Company Number: GB-SANOFI-AVENTIS-2011SA038521

PATIENT
  Age: 75 Year
  Sex: Male

DRUGS (6)
  1. DOCETAXEL [Suspect]
     Route: 041
     Dates: start: 20110510, end: 20110510
  2. DOCETAXEL [Suspect]
     Indication: PROSTATE CANCER
     Route: 041
     Dates: start: 20110215, end: 20110215
  3. BLINDED THERAPY [Suspect]
     Route: 048
     Dates: start: 20110510
  4. BLINDED THERAPY [Suspect]
     Indication: PROSTATE CANCER
     Route: 048
     Dates: start: 20110215
  5. PREDNISONE [Suspect]
     Dates: start: 20110510
  6. PREDNISONE [Suspect]
     Indication: PROSTATE CANCER
     Dates: start: 20110215

REACTIONS (5)
  - SYNCOPE [None]
  - FALL [None]
  - PYREXIA [None]
  - ORAL PAIN [None]
  - ANAEMIA [None]
